FAERS Safety Report 23999522 (Version 1)
Quarter: 2024Q2

REPORT INFORMATION
  Report Type: Spontaneous
  Country: IN (occurrence: IN)
  Receive Date: 20240621
  Receipt Date: 20240621
  Transmission Date: 20240715
  Serious: Yes (Hospitalization)
  Sender: FDA-Public Use
  Company Number: IN-PFIZER INC-PV202400011183

PATIENT
  Age: 41 Year
  Sex: Female

DRUGS (2)
  1. CRIZOTINIB [Suspect]
     Active Substance: CRIZOTINIB
     Dosage: 250 MG, 2X/DAY
     Route: 048
     Dates: start: 20231031, end: 20240611
  2. CRIZOTINIB [Suspect]
     Active Substance: CRIZOTINIB
     Dosage: UNK
     Route: 048
     Dates: end: 20240608

REACTIONS (7)
  - Abdominal discomfort [Unknown]
  - Lung disorder [Unknown]
  - Dyspnoea exertional [Unknown]
  - Cough [Unknown]
  - Pyrexia [Unknown]
  - Pelvic pain [Unknown]
  - Neoplasm progression [Unknown]
